FAERS Safety Report 4745140-2 (Version None)
Quarter: 2005Q3

REPORT INFORMATION
  Report Type: 
  Country: None (occurrence: None)
  Receive Date: 20050815
  Receipt Date: 20050804
  Transmission Date: 20060218
  Serious: Yes (Hospitalization)
  Sender: FDA-Public Use
  Company Number: DE-ROCHE-412954

PATIENT
  Age: 58 Year
  Sex: Male
  Weight: 93 kg

DRUGS (2)
  1. PEGASYS [Suspect]
     Route: 058
     Dates: start: 20040330
  2. RIBAVIRIN [Suspect]
     Route: 048

REACTIONS (1)
  - PANCYTOPENIA [None]
